FAERS Safety Report 10074608 (Version 2)
Quarter: 2014Q2

REPORT INFORMATION
  Report Type: Spontaneous
  Country: GB (occurrence: GB)
  Receive Date: 20140413
  Receipt Date: 20140522
  Transmission Date: 20141212
  Serious: Yes (Other)
  Sender: FDA-Public Use
  Company Number: GB-ROCHE-1377613

PATIENT
  Sex: Male

DRUGS (1)
  1. ROACTEMRA [Suspect]
     Indication: PRODUCT USED FOR UNKNOWN INDICATION
     Route: 065

REACTIONS (3)
  - General physical health deterioration [Unknown]
  - Drug ineffective [Unknown]
  - Rheumatoid arthritis [Recovered/Resolved]
